FAERS Safety Report 7653063-4 (Version None)
Quarter: 2011Q3

REPORT INFORMATION
  Report Type: 
  Country: None (occurrence: None)
  Receive Date: 20110803
  Receipt Date: 20110729
  Transmission Date: 20111222
  Serious: Yes (Hospitalization)
  Sender: FDA-Public Use
  Company Number: FR-ROCHE-793457

PATIENT
  Sex: Female

DRUGS (3)
  1. TIAPRIDAL [Suspect]
     Indication: DEPRESSION
     Dosage: STRENGTH: 100 MG/2 ML
     Route: 042
     Dates: start: 20110617, end: 20110617
  2. VALIUM [Suspect]
     Indication: DEPRESSION
     Route: 042
     Dates: start: 20110617, end: 20110617
  3. CITALOPRAM HYDROBROMIDE [Suspect]
     Indication: DEPRESSION
     Route: 042
     Dates: start: 20110617, end: 20110617

REACTIONS (1)
  - BRADYCARDIA [None]
